FAERS Safety Report 19271515 (Version 1)
Quarter: 2021Q2

REPORT INFORMATION
  Report Type: Spontaneous
  Country: US (occurrence: US)
  Receive Date: 20210519
  Receipt Date: 20210519
  Transmission Date: 20210717
  Serious: No
  Sender: FDA-Public Use
  Company Number: US-ASTRAZENECA-2021A342929

PATIENT
  Age: 72 Year
  Sex: Female
  Weight: 90.7 kg

DRUGS (3)
  1. ALBUTEROL. [Concomitant]
     Active Substance: ALBUTEROL
     Indication: ASTHMA
     Dosage: UNKNOWN AS REQUIRED
     Route: 055
  2. FLUTICASONE. [Concomitant]
     Active Substance: FLUTICASONE
     Indication: ASTHMA
     Route: 045
     Dates: start: 2016
  3. SYMBICORT [Suspect]
     Active Substance: BUDESONIDE\FORMOTEROL FUMARATE DIHYDRATE
     Indication: ASTHMA LATE ONSET
     Dosage: 80/4.5 MCG. TWO PUFFS TWO TIMES A DAY
     Route: 055

REACTIONS (6)
  - Product use issue [Not Recovered/Not Resolved]
  - Product dose omission issue [Recovered/Resolved]
  - Weight increased [Not Recovered/Not Resolved]
  - Device issue [Unknown]
  - Weight fluctuation [Not Recovered/Not Resolved]
  - Intentional product misuse [Unknown]

NARRATIVE: CASE EVENT DATE: 2020
